FAERS Safety Report 12370656 (Version 1)
Quarter: 2016Q2

REPORT INFORMATION
  Report Type: Spontaneous
  Country: US (occurrence: None)
  Receive Date: 20160513
  Receipt Date: 20160513
  Transmission Date: 20160815
  Serious: Yes (Life-Threatening)
  Sender: FDA-Public Use
  Company Number: None

PATIENT
  Age: 37 Year
  Sex: Male
  Weight: 127 kg

DRUGS (2)
  1. CLOZAPINE 100MG [Suspect]
     Active Substance: CLOZAPINE
     Indication: SCHIZOPHRENIA
     Dosage: 100MG Q8AM ORALLY
     Route: 048
     Dates: start: 20151229, end: 20160101
  2. CLOZAPINE 200MG TEVA [Suspect]
     Active Substance: CLOZAPINE
     Dosage: 100MG Q8PM ORALLY
     Route: 048
     Dates: start: 20151229, end: 20160101

REACTIONS (8)
  - Musculoskeletal discomfort [None]
  - Dyspnoea [None]
  - Chest discomfort [None]
  - Oedema [None]
  - Tachycardia [None]
  - Blood pressure increased [None]
  - Oxygen saturation decreased [None]
  - Oedema peripheral [None]

NARRATIVE: CASE EVENT DATE: 20160120
